FAERS Safety Report 7950636-6 (Version None)
Quarter: 2011Q4

REPORT INFORMATION
  Report Type: 
  Country: None (occurrence: None)
  Receive Date: 20111130
  Receipt Date: 20111102
  Transmission Date: 20120403
  Serious: Yes (Other)
  Sender: FDA-Public Use
  Company Number: US-AMGEN-USASP2011056303

PATIENT
  Age: 31 Year
  Sex: Female

DRUGS (2)
  1. ENBREL [Suspect]
     Indication: RHEUMATOID ARTHRITIS
     Dosage: 25 MG, 2 TIMES/WK
     Route: 058
     Dates: start: 20000601
  2. PREDNISONE TAB [Concomitant]
     Dosage: 5 MG, QD
     Route: 048

REACTIONS (5)
  - PRE-ECLAMPSIA [None]
  - RHEUMATOID ARTHRITIS [None]
  - JOINT EFFUSION [None]
  - BED REST [None]
  - MATERNAL EXPOSURE TIMING UNSPECIFIED [None]
